FAERS Safety Report 11635575 (Version 1)
Quarter: 2015Q4

REPORT INFORMATION
  Report Type: Spontaneous
  Country: US (occurrence: US)
  Receive Date: 20151016
  Receipt Date: 20151016
  Transmission Date: 20160304
  Serious: No
  Sender: FDA-Public Use
  Company Number: US-PFIZER INC-2015340996

PATIENT
  Sex: Female

DRUGS (7)
  1. NEOSPORIN [Suspect]
     Active Substance: BACITRACIN ZINC\NEOMYCIN SULFATE\POLYMYXIN B SULFATE
     Dosage: UNK
  2. NAPRELAN [Suspect]
     Active Substance: NAPROXEN SODIUM
     Dosage: UNK
  3. BUMETANIDE. [Suspect]
     Active Substance: BUMETANIDE
  4. INDOCIN [Suspect]
     Active Substance: INDOMETHACIN\INDOMETHACIN SODIUM
  5. AMITIZA [Suspect]
     Active Substance: LUBIPROSTONE
  6. LODINE [Suspect]
     Active Substance: ETODOLAC
     Dosage: UNK
  7. ZELNORM [Suspect]
     Active Substance: TEGASEROD MALEATE

REACTIONS (1)
  - Drug hypersensitivity [Not Recovered/Not Resolved]
